FAERS Safety Report 6083933-2 (Version None)
Quarter: 2009Q1

REPORT INFORMATION
  Report Type: 
  Country: None (occurrence: None)
  Receive Date: 20090217
  Receipt Date: 20090205
  Transmission Date: 20090719
  Serious: Yes (Disabling)
  Sender: FDA-Public Use
  Company Number: APP200800736

PATIENT
  Age: 19 Year
  Sex: Male

DRUGS (4)
  1. BUPIVACAINE [Suspect]
     Indication: MUSCULOSKELETAL PAIN
     Dosage: INTRA-ARTICULAR
     Route: 014
     Dates: start: 20060307
  2. MARCAINE HCL W/ EPINEPHRINE [Suspect]
     Indication: MUSCULOSKELETAL PAIN
     Dosage: BOLUS, INTRA-ARTICULAR
     Route: 014
     Dates: start: 20060307, end: 20060307
  3. LIDOCAINE [Suspect]
     Indication: MUSCULOSKELETAL PAIN
     Dosage: INTRA-ARTICULAR
     Route: 014
     Dates: start: 20060307
  4. SORENSON MEDICAL PAIN PUMP [Suspect]
     Indication: MUSCULOSKELETAL PAIN
     Dates: start: 20060307

REACTIONS (7)
  - CHONDROLYSIS [None]
  - FALL [None]
  - JOINT INJURY [None]
  - JOINT INSTABILITY [None]
  - JOINT SPRAIN [None]
  - ROTATOR CUFF SYNDROME [None]
  - TENDON RUPTURE [None]
